FAERS Safety Report 8030428-2 (Version None)
Quarter: 2012Q1

REPORT INFORMATION
  Report Type: 
  Country: None (occurrence: None)
  Receive Date: 20120109
  Receipt Date: 20120109
  Transmission Date: 20120608
  Serious: Yes (Life-Threatening)
  Sender: FDA-Public Use
  Company Number: None

PATIENT
  Age: 53 Year
  Sex: Female
  Weight: 84.821 kg

DRUGS (2)
  1. LATUDA [Suspect]
     Indication: BIPOLAR II DISORDER
     Dosage: 40 MG
     Route: 048
     Dates: start: 20120103, end: 20120105
  2. LATUDA [Suspect]
     Indication: DEPRESSION
     Dosage: 40 MG
     Route: 048
     Dates: start: 20120103, end: 20120105

REACTIONS (7)
  - HEART RATE INCREASED [None]
  - HYPERHIDROSIS [None]
  - MYALGIA [None]
  - HEADACHE [None]
  - CONFUSIONAL STATE [None]
  - INSOMNIA [None]
  - MOVEMENT DISORDER [None]
